FAERS Safety Report 6098206-1 (Version None)
Quarter: 2009Q1

REPORT INFORMATION
  Report Type: 
  Country: None (occurrence: None)
  Receive Date: 20090227
  Receipt Date: 20090220
  Transmission Date: 20090719
  Serious: Yes (Other)
  Sender: FDA-Public Use
  Company Number: US-ABBOTT-08P-163-0469255-00

PATIENT
  Sex: Female
  Weight: 83.99 kg

DRUGS (20)
  1. HUMIRA [Suspect]
     Indication: RHEUMATOID ARTHRITIS
     Route: 050
     Dates: start: 20080401
  2. METHOTREXATE [Concomitant]
     Indication: RHEUMATOID ARTHRITIS
     Route: 048
     Dates: end: 20080722
  3. METHOTREXATE [Concomitant]
     Route: 048
     Dates: start: 20080722
  4. METHOTREXATE [Concomitant]
  5. CENTRUM SILVER NO IRON [Concomitant]
     Indication: VITAMIN SUPPLEMENTATION
     Route: 048
  6. ASCORBIC ACID [Concomitant]
     Indication: VITAMIN SUPPLEMENTATION
     Route: 048
  7. VITAMIN D [Concomitant]
     Indication: VITAMIN SUPPLEMENTATION
     Route: 048
  8. FISH OIL [Concomitant]
     Indication: MEDICAL DIET
     Dosage: FOUR PILLS IN ONE DAY
     Route: 048
  9. FLAXSEED OIL [Concomitant]
     Indication: MEDICAL DIET
     Dosage: THREE TABLETS EVERY DAY
     Route: 048
  10. SYNTHROID [Concomitant]
     Indication: HYPOTHYROIDISM
     Route: 048
  11. SYNTHROID [Concomitant]
  12. LISINOPRIL AND HYDROCHLOROTHIAZIDE [Concomitant]
     Indication: BLOOD PRESSURE
     Dosage: 20/25 EVERY DAY
     Route: 048
  13. METOPROLOL [Concomitant]
     Indication: BLOOD PRESSURE
     Route: 048
  14. FOLIC ACID [Concomitant]
     Indication: VITAMIN SUPPLEMENTATION
     Dosage: 1/DAY FOR 5 DAYS
     Route: 048
  15. ASPIRIN [Concomitant]
     Indication: ANTICOAGULANT THERAPY
     Route: 048
  16. RELAFEN [Concomitant]
     Indication: DRUG USE FOR UNKNOWN INDICATION
     Dosage: 2 IN AM, 1 IN PM
  17. BENICAR [Concomitant]
     Indication: BLOOD PRESSURE
  18. VIT E [Concomitant]
     Indication: DRUG USE FOR UNKNOWN INDICATION
  19. CITRACAL WITH D [Concomitant]
     Indication: DRUG USE FOR UNKNOWN INDICATION
  20. GLUCOSAMINE [Concomitant]
     Indication: DRUG USE FOR UNKNOWN INDICATION

REACTIONS (4)
  - DRUG INEFFECTIVE [None]
  - DRY EYE [None]
  - PAIN [None]
  - VISUAL ACUITY REDUCED [None]
